FAERS Safety Report 24227366 (Version 5)
Quarter: 2024Q4

REPORT INFORMATION
  Report Type: Spontaneous
  Country: US (occurrence: US)
  Receive Date: 20240820
  Receipt Date: 20241217
  Transmission Date: 20250115
  Serious: No
  Sender: PFIZER
  Company Number: US-PFIZER INC-202400236092

PATIENT
  Age: 9 Year
  Sex: Female
  Weight: 24.04 kg

DRUGS (4)
  1. GENOTROPIN [Suspect]
     Active Substance: SOMATROPIN
     Indication: Growth hormone deficiency
     Dosage: 1.2 MG, ALTERNATE DAY (ONCE A DAY; ALTERNATE 1.2 MG AND 1.4 MG, 6 DAYS PER WEEK)
     Route: 058
     Dates: start: 20240812
  2. GENOTROPIN [Suspect]
     Active Substance: SOMATROPIN
     Dosage: 1.4 MG, ALTERNATE DAY (ONCE A DAY; ALTERNATE 1.2 MG AND 1.4 MG, 6 DAYS PER WEEK)
     Route: 058
  3. VYVANSE [Concomitant]
     Active Substance: LISDEXAMFETAMINE DIMESYLATE
     Indication: Attention deficit hyperactivity disorder
     Dosage: 40 MG, 1X/DAY (ONCE EVERY MORNING, BY MOUTH; STARTED TAKING FIVE YEARS AGO)
     Route: 048
     Dates: start: 2019
  4. LANTUS SOLOSTAR [Concomitant]
     Active Substance: INSULIN GLARGINE
     Indication: Type 1 diabetes mellitus
     Dosage: UNK (MORNING UNTIL 4PM ONE UNIT EVERY 15 CARBS AFTER 4PM IS ONE UNIT PER 12 CARBS THROUGH THE PUMP)
     Dates: start: 2023

REACTIONS (4)
  - Drug dose omission by device [Unknown]
  - Device defective [Unknown]
  - Device leakage [Unknown]
  - Device breakage [Unknown]

NARRATIVE: CASE EVENT DATE: 20240801
